FAERS Safety Report 7036318-6 (Version None)
Quarter: 2010Q4

REPORT INFORMATION
  Report Type: 
  Country: None (occurrence: None)
  Receive Date: 20101008
  Receipt Date: 20101001
  Transmission Date: 20110411
  Serious: Yes (Other)
  Sender: FDA-Public Use
  Company Number: US-AMGEN-QUU442410

PATIENT
  Sex: Female

DRUGS (4)
  1. EPOGEN [Suspect]
     Indication: DIALYSIS
     Dates: start: 20070101
  2. SENSIPAR [Suspect]
     Indication: HYPERPARATHYROIDISM SECONDARY
  3. CALCIUM ACETATE [Concomitant]
  4. RENAGEL [Concomitant]

REACTIONS (2)
  - ANGINA PECTORIS [None]
  - THERAPEUTIC RESPONSE DECREASED [None]
